FAERS Safety Report 12526699 (Version 5)
Quarter: 2020Q4

REPORT INFORMATION
  Report Type: Report from Study
  Country: JP (occurrence: JP)
  Receive Date: 20160705
  Receipt Date: 20201005
  Transmission Date: 20210113
  Serious: Yes (Hospitalization, Other)
  Sender: FDA-Public Use
  Company Number: JP-ASTELLAS-2010JP000090

PATIENT
  Age: 51 Year
  Sex: Female
  Weight: 43 kg

DRUGS (57)
  1. PREDNISOLONE. [Suspect]
     Active Substance: PREDNISOLONE
     Dosage: 15 OR 10 MG/DAY, EVERY OTHER DAY
     Route: 048
     Dates: start: 20110205, end: 20110826
  2. BUFFERIN A [Concomitant]
     Indication: PROPHYLAXIS
     Route: 048
  3. DASEN [Concomitant]
     Active Substance: SERRAPEPTASE
     Route: 065
  4. DASEN [Concomitant]
     Active Substance: SERRAPEPTASE
     Route: 065
  5. DASEN [Concomitant]
     Active Substance: SERRAPEPTASE
     Route: 065
  6. DASEN [Concomitant]
     Active Substance: SERRAPEPTASE
     Route: 065
  7. PREDNISOLONE. [Suspect]
     Active Substance: PREDNISOLONE
     Route: 048
     Dates: start: 20070630, end: 20070727
  8. PREDNISOLONE. [Suspect]
     Active Substance: PREDNISOLONE
     Route: 048
     Dates: start: 20110930, end: 20120323
  9. PURSENNIDE [Concomitant]
     Route: 048
     Dates: start: 20101216
  10. PL [Concomitant]
     Active Substance: ACETAMINOPHEN\CAFFEINE\PROMETHAZINE\SALICYLAMIDE
     Route: 048
  11. PL [Concomitant]
     Active Substance: ACETAMINOPHEN\CAFFEINE\PROMETHAZINE\SALICYLAMIDE
     Route: 048
  12. CELLCEPT [Concomitant]
     Active Substance: MYCOPHENOLATE MOFETIL\MYCOPHENOLATE MOFETIL HYDROCHLORIDE
     Indication: LUPUS NEPHRITIS
  13. PREDNISOLONE. [Suspect]
     Active Substance: PREDNISOLONE
     Indication: LUPUS NEPHRITIS
     Dosage: 25 OR 20 MG/DAY, EVERY OTHER DAY
     Route: 048
     Dates: end: 20070629
  14. PREDNISOLONE. [Suspect]
     Active Substance: PREDNISOLONE
     Route: 048
     Dates: start: 20080311, end: 20080912
  15. PREDNISOLONE. [Suspect]
     Active Substance: PREDNISOLONE
     Route: 048
     Dates: start: 20100810, end: 20101224
  16. PL [Concomitant]
     Active Substance: ACETAMINOPHEN\CAFFEINE\PROMETHAZINE\SALICYLAMIDE
     Route: 048
  17. PL [Concomitant]
     Active Substance: ACETAMINOPHEN\CAFFEINE\PROMETHAZINE\SALICYLAMIDE
     Route: 048
  18. DASEN [Concomitant]
     Active Substance: SERRAPEPTASE
     Route: 065
  19. MYSLEE [Concomitant]
     Active Substance: ZOLPIDEM TARTRATE
     Indication: PROPHYLAXIS
     Route: 048
     Dates: start: 20100216
  20. BENET [Suspect]
     Active Substance: RISEDRONATE SODIUM
     Indication: PROPHYLAXIS
     Route: 048
     Dates: end: 20100215
  21. BREDININ [Concomitant]
     Active Substance: MIZORIBINE
     Route: 048
     Dates: start: 20101029
  22. LIPITOR [Concomitant]
     Active Substance: ATORVASTATIN CALCIUM
     Indication: PRODUCT USED FOR UNKNOWN INDICATION
     Route: 048
  23. PL [Concomitant]
     Active Substance: ACETAMINOPHEN\CAFFEINE\PROMETHAZINE\SALICYLAMIDE
     Route: 048
  24. PL [Concomitant]
     Active Substance: ACETAMINOPHEN\CAFFEINE\PROMETHAZINE\SALICYLAMIDE
     Route: 048
  25. DASEN [Concomitant]
     Active Substance: SERRAPEPTASE
     Indication: PHARYNGITIS
     Route: 065
  26. DASEN [Concomitant]
     Active Substance: SERRAPEPTASE
     Route: 065
  27. DASEN [Concomitant]
     Active Substance: SERRAPEPTASE
     Route: 065
  28. TEGRETOL [Concomitant]
     Active Substance: CARBAMAZEPINE
     Indication: TRIGEMINAL NEURALGIA
     Dosage: UNK UNK, UNKNOWN FREQ.
     Route: 065
  29. TACROLIMUS. [Suspect]
     Active Substance: TACROLIMUS
     Indication: LUPUS NEPHRITIS
     Route: 048
     Dates: start: 20070609, end: 20100809
  30. DEPAS [Concomitant]
     Indication: PRODUCT USED FOR UNKNOWN INDICATION
     Dosage: 0.5 MG, ONCE DAILY
     Route: 048
  31. DEPAS [Concomitant]
     Route: 048
  32. PL [Concomitant]
     Active Substance: ACETAMINOPHEN\CAFFEINE\PROMETHAZINE\SALICYLAMIDE
     Route: 048
  33. DASEN [Concomitant]
     Active Substance: SERRAPEPTASE
     Route: 065
  34. DASEN [Concomitant]
     Active Substance: SERRAPEPTASE
     Route: 065
  35. PREDNISOLONE. [Suspect]
     Active Substance: PREDNISOLONE
     Dosage: 25 OR 20 MG/DAY, EVERY OTHER DAY
     Route: 048
     Dates: start: 20080913, end: 20100809
  36. PREDNISOLONE. [Suspect]
     Active Substance: PREDNISOLONE
     Route: 048
     Dates: start: 20101225, end: 20110204
  37. BREDININ [Concomitant]
     Active Substance: MIZORIBINE
     Indication: LUPUS NEPHRITIS
     Route: 048
     Dates: end: 20070727
  38. GLAKAY [Concomitant]
     Active Substance: MENATETRENONE
     Indication: PROPHYLAXIS
     Route: 048
     Dates: start: 20080112
  39. AMOBAN [Concomitant]
     Active Substance: ZOPICLONE
     Indication: PRODUCT USED FOR UNKNOWN INDICATION
     Route: 048
     Dates: end: 20070712
  40. PL [Concomitant]
     Active Substance: ACETAMINOPHEN\CAFFEINE\PROMETHAZINE\SALICYLAMIDE
     Indication: PHARYNGITIS
     Route: 048
  41. PL [Concomitant]
     Active Substance: ACETAMINOPHEN\CAFFEINE\PROMETHAZINE\SALICYLAMIDE
     Route: 048
  42. PL [Concomitant]
     Active Substance: ACETAMINOPHEN\CAFFEINE\PROMETHAZINE\SALICYLAMIDE
     Route: 048
  43. DASEN [Concomitant]
     Active Substance: SERRAPEPTASE
     Route: 065
  44. DASEN [Concomitant]
     Active Substance: SERRAPEPTASE
     Route: 065
  45. PREDNISOLONE. [Suspect]
     Active Substance: PREDNISOLONE
     Route: 048
     Dates: start: 20080112, end: 20080310
  46. PREDNISOLONE. [Suspect]
     Active Substance: PREDNISOLONE
     Route: 048
     Dates: start: 20120324
  47. PURSENNIDE [Concomitant]
     Indication: PRODUCT USED FOR UNKNOWN INDICATION
     Route: 048
     Dates: end: 20100215
  48. PL [Concomitant]
     Active Substance: ACETAMINOPHEN\CAFFEINE\PROMETHAZINE\SALICYLAMIDE
     Route: 048
  49. PL [Concomitant]
     Active Substance: ACETAMINOPHEN\CAFFEINE\PROMETHAZINE\SALICYLAMIDE
     Route: 048
  50. DASEN [Concomitant]
     Active Substance: SERRAPEPTASE
     Route: 065
  51. DASEN [Concomitant]
     Active Substance: SERRAPEPTASE
     Route: 065
  52. CELLCEPT [Concomitant]
     Active Substance: MYCOPHENOLATE MOFETIL\MYCOPHENOLATE MOFETIL HYDROCHLORIDE
     Indication: LUPUS NEPHRITIS
     Route: 048
     Dates: start: 20100316, end: 20100412
  53. PREDNISOLONE. [Suspect]
     Active Substance: PREDNISOLONE
     Dosage: 25 OR 20 MG/DAY, EVERY OTHER DAY
     Route: 048
     Dates: start: 20070728, end: 20080111
  54. GASTER [Concomitant]
     Active Substance: FAMOTIDINE
     Indication: PROPHYLAXIS
     Route: 048
  55. LENDORMIN [Concomitant]
     Active Substance: BROTIZOLAM
     Indication: PRODUCT USED FOR UNKNOWN INDICATION
     Dosage: 0.25 MG, ONCE DAILY
     Route: 048
  56. PL [Concomitant]
     Active Substance: ACETAMINOPHEN\CAFFEINE\PROMETHAZINE\SALICYLAMIDE
     Route: 048
  57. PL [Concomitant]
     Active Substance: ACETAMINOPHEN\CAFFEINE\PROMETHAZINE\SALICYLAMIDE
     Route: 048

REACTIONS (6)
  - Trigeminal neuralgia [Recovering/Resolving]
  - Hemianaesthesia [Recovering/Resolving]
  - Sinusitis fungal [Unknown]
  - Pharyngitis [Recovering/Resolving]
  - Cataract [Recovering/Resolving]
  - Osteomyelitis [Unknown]

NARRATIVE: CASE EVENT DATE: 20071119
